FAERS Safety Report 16283391 (Version 2)
Quarter: 2020Q4

REPORT INFORMATION
  Report Type: Spontaneous
  Country: US (occurrence: US)
  Receive Date: 20190507
  Receipt Date: 20201027
  Transmission Date: 20210113
  Serious: Yes (Hospitalization, Other)
  Sender: FDA-Public Use
  Company Number: US-ASTRAZENECA-2019SE63030

PATIENT
  Age: 22509 Day
  Sex: Female
  Weight: 56.2 kg

DRUGS (61)
  1. PRILOSEC [Suspect]
     Active Substance: OMEPRAZOLE MAGNESIUM
     Indication: GASTROOESOPHAGEAL REFLUX DISEASE
     Dosage: 20-40 MG DAILY
     Route: 065
     Dates: start: 20150121, end: 20180102
  2. ESTRADIOL. [Concomitant]
     Active Substance: ESTRADIOL
     Indication: MENOPAUSE
     Dates: start: 20150313, end: 20161226
  3. VITAMIN B [Concomitant]
     Active Substance: VITAMIN B
     Indication: NERVE INJURY
     Dates: start: 2015
  4. METOPROLOL TARTRATE. [Concomitant]
     Active Substance: METOPROLOL TARTRATE
  5. PREDNISOLONE. [Concomitant]
     Active Substance: PREDNISOLONE
  6. HYDROCODONE-HOMATROPINE [Concomitant]
  7. BACLOFEN. [Concomitant]
     Active Substance: BACLOFEN
  8. NEUPRO [Concomitant]
     Active Substance: ROTIGOTINE
  9. MULTIVITAMINS [Concomitant]
     Active Substance: VITAMINS
  10. PLAVIX [Concomitant]
     Active Substance: CLOPIDOGREL BISULFATE
  11. PRILOSEC [Suspect]
     Active Substance: OMEPRAZOLE MAGNESIUM
     Indication: GASTROOESOPHAGEAL REFLUX DISEASE
     Route: 048
     Dates: start: 200001, end: 201412
  12. NEXIUM [Suspect]
     Active Substance: ESOMEPRAZOLE MAGNESIUM
     Indication: GASTROOESOPHAGEAL REFLUX DISEASE
     Route: 048
     Dates: start: 2014, end: 2017
  13. ATORVASTATIN [Concomitant]
     Active Substance: ATORVASTATIN
  14. DICYCLOMINE [Concomitant]
     Active Substance: DICYCLOMINE HYDROCHLORIDE
  15. NITROSTAT [Concomitant]
     Active Substance: NITROGLYCERIN
  16. BRILINTA [Concomitant]
     Active Substance: TICAGRELOR
  17. COLCHICINE. [Concomitant]
     Active Substance: COLCHICINE
  18. TRIFLURIDINE. [Concomitant]
     Active Substance: TRIFLURIDINE
  19. SINEMET [Concomitant]
     Active Substance: CARBIDOPA\LEVODOPA
  20. BLEPH-10 [Concomitant]
     Active Substance: SULFACETAMIDE SODIUM
  21. ALLOPURINOL. [Concomitant]
     Active Substance: ALLOPURINOL
     Indication: GOUT
     Dates: start: 20160922, end: 20190401
  22. VITAMIN C [Concomitant]
     Active Substance: ASCORBIC ACID
     Indication: BLOOD IRON
     Dates: start: 2015
  23. DRONABINOL. [Concomitant]
     Active Substance: DRONABINOL
  24. STATIN [Concomitant]
     Active Substance: UNSPECIFIED INGREDIENT
  25. ERYTHROPOIETIN [Concomitant]
     Active Substance: ERYTHROPOIETIN
  26. AMLODIPINE [Concomitant]
     Active Substance: AMLODIPINE BESYLATE
     Indication: HYPERTENSION
     Dates: start: 20160311, end: 20190415
  27. RANITIDINE. [Concomitant]
     Active Substance: RANITIDINE
     Dates: start: 20170313, end: 20170414
  28. IBUPROFEN. [Concomitant]
     Active Substance: IBUPROFEN
  29. SILVER SULFADIAZINE. [Concomitant]
     Active Substance: SILVER SULFADIAZINE
  30. COENZYME Q10 [Concomitant]
     Active Substance: DIETARY SUPPLEMENT\UBIDECARENONE
  31. FERROUS SULFATE. [Concomitant]
     Active Substance: FERROUS SULFATE
  32. CARBIDOPA. [Concomitant]
     Active Substance: CARBIDOPA
  33. TEMAZEPAM. [Concomitant]
     Active Substance: TEMAZEPAM
     Indication: INSOMNIA
     Dates: start: 20170118, end: 20190402
  34. HYDROCHLOROTHIAZIDE. [Concomitant]
     Active Substance: HYDROCHLOROTHIAZIDE
  35. HYDRALAZINE [Concomitant]
     Active Substance: HYDRALAZINE HYDROCHLORIDE
  36. ASPIRIN. [Concomitant]
     Active Substance: ASPIRIN
  37. BUMETANIDE. [Concomitant]
     Active Substance: BUMETANIDE
  38. REGLAN [Concomitant]
     Active Substance: METOCLOPRAMIDE HYDROCHLORIDE
  39. DIOVAN [Concomitant]
     Active Substance: VALSARTAN
  40. POLYETHYLENE GLYCOL [Concomitant]
     Active Substance: POLYETHYLENE GLYCOLS
  41. AMLODIPINE BESYLATE. [Concomitant]
     Active Substance: AMLODIPINE BESYLATE
  42. FUROSEMIDE. [Concomitant]
     Active Substance: FUROSEMIDE
  43. VALACYCLOVIR [Concomitant]
     Active Substance: VALACYCLOVIR HYDROCHLORIDE
  44. CITALOPRAM [Concomitant]
     Active Substance: CITALOPRAM HYDROBROMIDE
  45. VITAMIN D [Concomitant]
     Active Substance: VITAMIN D NOS
     Indication: LIVER DISORDER
     Dates: start: 20150909
  46. ACYCLOVIR. [Concomitant]
     Active Substance: ACYCLOVIR
  47. CLOPIDOGREL [Concomitant]
     Active Substance: CLOPIDOGREL BISULFATE
  48. LAMOTRIGINE. [Concomitant]
     Active Substance: LAMOTRIGINE
  49. SULFACETAMIDE. [Concomitant]
     Active Substance: SULFACETAMIDE
  50. FLUCELVAX NOS [Concomitant]
     Active Substance: INFLUENZA A VIRUS A/BRISBANE/10/2010 (H1N1) ANTIGEN (MDCK CELL DERIVED, PROPIOLACTONE INACTIVATED)\INFLUENZA A VIRUS A/VICTORIA/361/2011 IVR-165 (H3N2) ANTIGEN (MDCK CELL DERIVED, PROPIOLACTONE INACTIVATED)\INFLUENZA B VIRUS B/WISCONSIN/1/2010) ANTIGEN (MDCK CELL DERIVED, PROPIOLACTONE INACTIVATED)
  51. PREDNISOLONE ACETATE. [Concomitant]
     Active Substance: PREDNISOLONE ACETATE
  52. VITAMIN D3 [Concomitant]
     Active Substance: CHOLECALCIFEROL
  53. VALTREX [Concomitant]
     Active Substance: VALACYCLOVIR HYDROCHLORIDE
  54. CENTRUM [Concomitant]
     Active Substance: VITAMINS
  55. OXYGEN. [Concomitant]
     Active Substance: OXYGEN
  56. FERRITIN [Concomitant]
     Active Substance: FERRITIN
  57. OXYCODONE-ACETAMINOPHEN [Concomitant]
     Active Substance: ACETAMINOPHEN\OXYCODONE HYDROCHLORIDE
  58. LORAZEPAM. [Concomitant]
     Active Substance: LORAZEPAM
  59. ZONISAMIDE. [Concomitant]
     Active Substance: ZONISAMIDE
  60. HYDROXYZINE PAM [Concomitant]
     Active Substance: HYDROXYZINE PAMOATE
  61. VIBERZI [Concomitant]
     Active Substance: ELUXADOLINE

REACTIONS (6)
  - Hyperparathyroidism secondary [Unknown]
  - Gout [Unknown]
  - Renal impairment [Unknown]
  - Nephrogenic anaemia [Unknown]
  - Renal failure [Unknown]
  - Chronic kidney disease [Not Recovered/Not Resolved]

NARRATIVE: CASE EVENT DATE: 20150206
